FAERS Safety Report 4940374-6 (Version None)
Quarter: 2006Q1

REPORT INFORMATION
  Report Type: 
  Country: None (occurrence: None)
  Receive Date: 20060310
  Receipt Date: 20050218
  Transmission Date: 20060701
  Serious: Yes (Hospitalization)
  Sender: FDA-Public Use
  Company Number: US-MERCK-0502USA02918

PATIENT
  Age: 53 Year
  Sex: Male

DRUGS (7)
  1. VIOXX [Suspect]
     Route: 048
  2. TOPROL-XL [Concomitant]
     Route: 065
  3. LOTREL [Concomitant]
     Route: 065
  4. HUMULIN 70/30 [Concomitant]
     Route: 065
  5. LORTAB [Concomitant]
     Indication: PAIN
     Route: 065
  6. CELEBREX [Concomitant]
     Route: 065
  7. SOMA [Concomitant]
     Route: 065

REACTIONS (3)
  - ATRIOVENTRICULAR BLOCK COMPLETE [None]
  - CEREBROVASCULAR ACCIDENT [None]
  - HEART RATE DECREASED [None]
